FAERS Safety Report 20174600 (Version 1)
Quarter: 2021Q4

REPORT INFORMATION
  Report Type: Spontaneous
  Country: AU (occurrence: AU)
  Receive Date: 20211213
  Receipt Date: 20211213
  Transmission Date: 20220303
  Serious: Yes (Hospitalization)
  Sender: FDA-Public Use
  Company Number: AU-CIPLA LTD.-2021AU07873

PATIENT

DRUGS (2)
  1. TADALAFIL [Suspect]
     Active Substance: TADALAFIL
     Indication: Penis disorder
     Dosage: UNK, ALTERNATE DAILY DOSE
     Route: 065
  2. SILDENAFIL [Suspect]
     Active Substance: SILDENAFIL
     Indication: Penis disorder
     Dosage: 100 MILLIGRAM, ALTERNATE DAILY DOSE
     Route: 065

REACTIONS (2)
  - Hypoglycaemia [Unknown]
  - Prescription drug used without a prescription [Unknown]
